FAERS Safety Report 10540385 (Version 1)
Quarter: 2014Q4

REPORT INFORMATION
  Report Type: Spontaneous
  Country: FR (occurrence: None)
  Receive Date: 20141022
  Receipt Date: 20141022
  Transmission Date: 20150529
  Serious: Yes (Hospitalization)
  Sender: FDA-Public Use
  Company Number: FR-20140334

PATIENT
  Age: 28 Year
  Sex: Female

DRUGS (5)
  1. GLIVEC (IMATINIB) [Concomitant]
  2. SESQUIHYDRATE (PANTOPRAZOLE SODIUM SESQUIHYDRATE) [Concomitant]
  3. DOTAREM [Suspect]
     Active Substance: GADOTERATE MEGLUMINE
     Indication: NUCLEAR MAGNETIC RESONANCE IMAGING BRAIN
     Dosage: 13 ML (13 ML, 1 - 2) INTRAVENOUS (NOT OTHERWISE SPECIFIED)
     Route: 042
  4. INIPOMP (PANTOPRAZOLE SODIUM0 [Concomitant]
  5. PROPOFOL LIPURO [Suspect]
     Active Substance: PROPOFOL
     Indication: GENERAL ANAESTHESIA
     Dosage: INTRAVENOUS (NOT OTHERWISE SPECIFIED)
     Route: 042
     Dates: start: 20140624, end: 20140625

REACTIONS (8)
  - Myalgia [None]
  - Asthenia [None]
  - Tachycardia [None]
  - Anuria [None]
  - Hypotension [None]
  - Hypovolaemia [None]
  - Acute kidney injury [None]
  - General physical health deterioration [None]

NARRATIVE: CASE EVENT DATE: 20140630
